FAERS Safety Report 7743634-9 (Version None)
Quarter: 2011Q3

REPORT INFORMATION
  Report Type: 
  Country: None (occurrence: None)
  Receive Date: 20110912
  Receipt Date: 20110907
  Transmission Date: 20111222
  Serious: Yes (Hospitalization)
  Sender: FDA-Public Use
  Company Number: US-VERTEX PHARMACEUTICALS INC.-AE-2011-001338

PATIENT
  Sex: Male
  Weight: 75.818 kg

DRUGS (4)
  1. RIBAVIRIN [Concomitant]
     Indication: HEPATITIS C
     Dates: start: 20110710
  2. PEGASYS [Concomitant]
     Indication: HEPATITIS C
     Dates: start: 20110710
  3. PROCRIT [Concomitant]
     Dates: start: 20110808
  4. INCIVEK [Suspect]
     Indication: HEPATITIS C
     Route: 048
     Dates: start: 20110710

REACTIONS (3)
  - PYREXIA [None]
  - RASH GENERALISED [None]
  - PRURITUS [None]
